FAERS Safety Report 11822373 (Version 1)
Quarter: 2015Q4

REPORT INFORMATION
  Report Type: Spontaneous
  Country: US (occurrence: US)
  Receive Date: 20151210
  Receipt Date: 20151210
  Transmission Date: 20160305
  Serious: No
  Sender: FDA-Public Use
  Company Number: US-JNJFOC-20150616903

PATIENT
  Sex: Female

DRUGS (3)
  1. IMBRUVICA [Suspect]
     Active Substance: IBRUTINIB
     Indication: MANTLE CELL LYMPHOMA
     Route: 048
     Dates: start: 20141028
  2. CLOBETASOL [Concomitant]
     Active Substance: CLOBETASOL
  3. MULTIVITAMINS [Concomitant]
     Active Substance: VITAMINS

REACTIONS (4)
  - Confusional state [Unknown]
  - Onychoclasis [Recovering/Resolving]
  - Skin haemorrhage [Unknown]
  - Rash [Unknown]

NARRATIVE: CASE EVENT DATE: 2014
